FAERS Safety Report 4475468-5 (Version None)
Quarter: 2004Q4

REPORT INFORMATION
  Report Type: 
  Country: None (occurrence: None)
  Receive Date: 20041014
  Receipt Date: 20041014
  Transmission Date: 20050328
  Serious: Yes (Life-Threatening, Hospitalization)
  Sender: FDA-Public Use
  Company Number: None

PATIENT
  Sex: Male
  Weight: 90.7194 kg

DRUGS (6)
  1. BEXTRA [Suspect]
     Indication: OSTEOARTHRITIS
     Dosage: 20 -40 MG QD/BID ORAL
     Route: 048
     Dates: start: 20020801, end: 20040912
  2. PRILOSEC [Concomitant]
  3. ASPIRIN [Concomitant]
  4. A-1 ANTIHYPERTENSIVE AGENT [Concomitant]
  5. LOTENSIN [Concomitant]
  6. MARCAINE/CORTISONE [Concomitant]

REACTIONS (2)
  - CORONARY ARTERY OCCLUSION [None]
  - MYOCARDIAL INFARCTION [None]
